FAERS Safety Report 11492276 (Version 1)
Quarter: 2015Q3

REPORT INFORMATION
  Report Type: Spontaneous
  Country: US (occurrence: None)
  Receive Date: 20150910
  Receipt Date: 20150910
  Transmission Date: 20151125
  Serious: No
  Sender: FDA-Public Use
  Company Number: None

PATIENT
  Age: 76 Year
  Sex: Male
  Weight: 104.33 kg

DRUGS (10)
  1. IRON [Concomitant]
     Active Substance: IRON
  2. METFORMIN [Concomitant]
     Active Substance: METFORMIN HYDROCHLORIDE
  3. BIOTIN [Concomitant]
     Active Substance: BIOTIN
  4. CINNAMON + CHROMIUM [Concomitant]
  5. TAMSULOSIN [Concomitant]
     Active Substance: TAMSULOSIN
  6. IPRATROPIUM [Concomitant]
     Active Substance: IPRATROPIUM
  7. MULTI VIT. [Concomitant]
  8. VITAMIN B12 [Concomitant]
     Active Substance: CYANOCOBALAMIN
  9. CARBAMAZEPINE ER [Suspect]
     Active Substance: CARBAMAZEPINE
     Indication: NERVOUS SYSTEM DISORDER
     Dosage: 1- 2XD THEN INCREASED 2- 2XD 2XD MOUTH
     Route: 048
     Dates: start: 20150602
  10. LISINOPRIL. [Concomitant]
     Active Substance: LISINOPRIL

REACTIONS (13)
  - Nervousness [None]
  - Abnormal behaviour [None]
  - Balance disorder [None]
  - Muscle spasms [None]
  - Dizziness [None]
  - Headache [None]
  - Somnolence [None]
  - Depression [None]
  - Impaired driving ability [None]
  - Arthropathy [None]
  - Vision blurred [None]
  - Musculoskeletal stiffness [None]
  - Muscle disorder [None]

NARRATIVE: CASE EVENT DATE: 20150602
